FAERS Safety Report 14619558 (Version 1)
Quarter: 2018Q1

REPORT INFORMATION
  Report Type: Spontaneous
  Country: GB (occurrence: GB)
  Receive Date: 20180309
  Receipt Date: 20180309
  Transmission Date: 20180509
  Serious: Yes (Other)
  Sender: FDA-Public Use
  Company Number: GB-AUROBINDO-AUR-APL-2018-012216

PATIENT
  Age: 20 Year
  Sex: Female
  Weight: 68.48 kg

DRUGS (1)
  1. METRONIDAZOLE. [Suspect]
     Active Substance: METRONIDAZOLE
     Indication: BACTERIAL INFECTION
     Dosage: 1000 MILLIGRAM
     Route: 048
     Dates: start: 20180209

REACTIONS (4)
  - Gingival erythema [Unknown]
  - Noninfective gingivitis [Unknown]
  - Gingival pain [Unknown]
  - Gingival discolouration [Unknown]

NARRATIVE: CASE EVENT DATE: 20180210
